FAERS Safety Report 15371553 (Version 1)
Quarter: 2018Q3

REPORT INFORMATION
  Report Type: Spontaneous
  Country: TW (occurrence: TW)
  Receive Date: 20180911
  Receipt Date: 20180911
  Transmission Date: 20181010
  Serious: Yes (Hospitalization, Other)
  Sender: FDA-Public Use
  Company Number: PHHY2018TW071263

PATIENT
  Age: 57 Year
  Sex: Female

DRUGS (2)
  1. CATAFLAM [Suspect]
     Active Substance: DICLOFENAC POTASSIUM
     Indication: FRACTURE
     Dosage: TID
     Route: 065
     Dates: start: 20180614, end: 20180726
  2. NEORAL [Suspect]
     Active Substance: CYCLOSPORINE
     Indication: DERMATOMYOSITIS
     Route: 048

REACTIONS (7)
  - Erythema [Recovering/Resolving]
  - Wrong technique in product usage process [Unknown]
  - Muscular weakness [Unknown]
  - Dysphagia [Unknown]
  - Burning sensation [Unknown]
  - Dermatomyositis [Unknown]
  - Swelling [Recovering/Resolving]

NARRATIVE: CASE EVENT DATE: 201806
